FAERS Safety Report 4317780-6 (Version None)
Quarter: 2004Q1

REPORT INFORMATION
  Report Type: 
  Country: None (occurrence: None)
  Receive Date: 20040315
  Receipt Date: 20040211
  Transmission Date: 20041129
  Serious: Yes (Other)
  Sender: FDA-Public Use
  Company Number: PHEH2004US01934

PATIENT
  Age: 53 Year
  Sex: Male
  Weight: 94 kg

DRUGS (3)
  1. GLEEVEC [Suspect]
     Indication: CHRONIC MYELOID LEUKAEMIA
     Dosage: 600 MG, QD
     Route: 048
  2. PREVACID [Concomitant]
     Indication: REFLUX OESOPHAGITIS
     Dosage: 30 MG, PRN
     Route: 048
  3. LASIX [Concomitant]
     Indication: OEDEMA PERIPHERAL
     Dosage: 40 MG, QOD PRN
     Route: 048

REACTIONS (6)
  - CARDIAC DISCOMFORT [None]
  - CORONARY ARTERY OCCLUSION [None]
  - EAR PAIN [None]
  - PAIN IN JAW [None]
  - PRINZMETAL ANGINA [None]
  - THROAT TIGHTNESS [None]
